FAERS Safety Report 7349988-X (Version None)
Quarter: 2011Q1

REPORT INFORMATION
  Report Type: 
  Country: None (occurrence: None)
  Receive Date: 20110314
  Receipt Date: 20110309
  Transmission Date: 20110831
  Serious: Yes (Hospitalization)
  Sender: FDA-Public Use
  Company Number: NL-ROCHE-763829

PATIENT
  Sex: Male

DRUGS (11)
  1. MIRCERA [Suspect]
     Route: 042
     Dates: start: 20100901
  2. MIRCERA [Suspect]
     Route: 042
     Dates: start: 20101101
  3. MIRCERA [Suspect]
     Route: 042
     Dates: start: 20100601
  4. MIRCERA [Suspect]
     Route: 042
     Dates: start: 20110101
  5. MIRCERA [Suspect]
     Route: 042
     Dates: start: 20100701
  6. MIRCERA [Suspect]
     Route: 042
     Dates: start: 20100801
  7. MIRCERA [Suspect]
     Dosage: DOSE REPORTED AS: 360 + 50
     Route: 042
     Dates: start: 20110201
  8. MIRCERA [Suspect]
     Route: 042
     Dates: start: 20101201
  9. MIRCERA [Suspect]
     Route: 042
     Dates: start: 20100401
  10. MIRCERA [Suspect]
     Route: 042
     Dates: start: 20100501
  11. MIRCERA [Suspect]
     Route: 042
     Dates: start: 20101001

REACTIONS (2)
  - HAEMOGLOBIN ABNORMAL [None]
  - PNEUMONIA [None]
